FAERS Safety Report 11481127 (Version 6)
Quarter: 2017Q2

REPORT INFORMATION
  Report Type: Report from Study
  Country: DK (occurrence: DK)
  Receive Date: 20150909
  Receipt Date: 20170411
  Transmission Date: 20170829
  Serious: Yes (Hospitalization, Other)
  Sender: FDA-Public Use
  Company Number: DK-EISAI MEDICAL RESEARCH-EC-2015-010257

PATIENT
  Age: 16 Year
  Sex: Female
  Weight: 68.3 kg

DRUGS (5)
  1. FYCOMPA [Suspect]
     Active Substance: PERAMPANEL
     Route: 048
     Dates: start: 20150305, end: 20150717
  2. ZONISAMIDE. [Concomitant]
     Active Substance: ZONISAMIDE
  3. CLOBAZAM [Concomitant]
     Active Substance: CLOBAZAM
  4. FYCOMPA [Suspect]
     Active Substance: PERAMPANEL
     Route: 048
     Dates: start: 20150203, end: 20150304
  5. FYCOMPA [Suspect]
     Active Substance: PERAMPANEL
     Indication: EPILEPSY
     Route: 048
     Dates: start: 20150112, end: 20150202

REACTIONS (1)
  - Psychotic disorder [Recovered/Resolved]

NARRATIVE: CASE EVENT DATE: 20150717
